FAERS Safety Report 13800985 (Version 1)
Quarter: 2017Q3

REPORT INFORMATION
  Report Type: Spontaneous
  Country: US (occurrence: US)
  Receive Date: 20170727
  Receipt Date: 20170727
  Transmission Date: 20171127
  Serious: Yes (Other)
  Sender: FDA-Public Use
  Company Number: US-SAOL THERAPEUTICS-2017SAO01154

PATIENT
  Age: 21 Year
  Sex: Male
  Weight: 51.2 kg

DRUGS (2)
  1. LIORESAL [Suspect]
     Active Substance: BACLOFEN
     Dosage: 50 ?G, \DAY
     Route: 037
     Dates: start: 20060727
  2. LIORESAL [Suspect]
     Active Substance: BACLOFEN
     Dosage: 2352.1 ?G, \DAY
     Route: 037

REACTIONS (4)
  - Spinal operation [Unknown]
  - Skin texture abnormal [Recovered/Resolved]
  - Decubitus ulcer [Unknown]
  - Bed rest [Unknown]

NARRATIVE: CASE EVENT DATE: 20100202
